FAERS Safety Report 9325159 (Version 2)
Quarter: 2013Q2

REPORT INFORMATION
  Report Type: Spontaneous
  Country: US (occurrence: US)
  Receive Date: 20130603
  Receipt Date: 20130615
  Transmission Date: 20140414
  Serious: Yes (Hospitalization)
  Sender: FDA-Public Use
  Company Number: US-009507513-1305USA016818

PATIENT
  Age: 47 Year
  Sex: Male

DRUGS (10)
  1. VICTRELIS [Suspect]
     Dosage: 800 MG, Q8H
     Dates: start: 2012
  2. PEGASYS [Suspect]
     Indication: HEPATITIS C
     Dosage: 180 MICROGRAM, QW, STRENGTH: 180 MCG/0.5 ML
     Route: 058
     Dates: start: 20120719
  3. RIBASPHERE [Suspect]
     Dosage: 600 MG, UNK
     Route: 048
     Dates: start: 2012
  4. RIBASPHERE [Suspect]
     Dosage: LOWER DOSE
     Dates: start: 20120803
  5. OMEPRAZOLE [Concomitant]
     Dosage: 20 MG
  6. ALBUTEROL (+) IPRATROPIUM BROMIDE [Concomitant]
     Dosage: 0.5/2.5 MG SOLUTION
  7. AZITHROMYCIN [Concomitant]
     Dosage: 500 MG
  8. CYCLOBENZAPRINE HYDROCHLORIDE [Concomitant]
     Dosage: 10 MG
  9. TRAZODONE HYDROCHLORIDE [Concomitant]
     Dosage: 50MG
  10. CIPROFLOXACIN [Concomitant]
     Dosage: 500 MG

REACTIONS (4)
  - Blood count abnormal [Not Recovered/Not Resolved]
  - Pain [Not Recovered/Not Resolved]
  - Rectal haemorrhage [Not Recovered/Not Resolved]
  - Fatigue [Not Recovered/Not Resolved]
